FAERS Safety Report 20566049 (Version 1)
Quarter: 2022Q1

REPORT INFORMATION
  Report Type: Spontaneous
  Country: US (occurrence: None)
  Receive Date: 20220307
  Receipt Date: 20220307
  Transmission Date: 20220423
  Serious: No
  Sender: FDA-Public Use
  Company Number: None

PATIENT
  Age: 68 Year
  Sex: Male

DRUGS (8)
  1. WELIREG [Suspect]
     Active Substance: BELZUTIFAN
     Indication: Renal cancer
     Dosage: FREQUENCY : DAILY;?
     Route: 048
  2. CRESTOR [Concomitant]
  3. DEXAMETHASONE [Concomitant]
     Active Substance: DEXAMETHASONE
  4. LANTUS [Concomitant]
  5. LEVOTHYROXINE [Concomitant]
  6. NOVOLOG [Concomitant]
  7. PRILOSEC [Concomitant]
  8. ASPIRIN [Concomitant]

REACTIONS (3)
  - Diarrhoea [None]
  - Fatigue [None]
  - Decreased appetite [None]
